FAERS Safety Report 15810931 (Version 1)
Quarter: 2019Q1

REPORT INFORMATION
  Report Type: Spontaneous
  Country: US (occurrence: US)
  Receive Date: 20190111
  Receipt Date: 20190111
  Transmission Date: 20190417
  Serious: Yes (Hospitalization, Disabling, Other)
  Sender: FDA-Public Use
  Company Number: US-BIO PRODUCTS LABORATORY LTD-2061082

PATIENT
  Age: 87 Year
  Sex: Female
  Weight: 62.32 kg

DRUGS (1)
  1. GAMMAPLEX [Suspect]
     Active Substance: HUMAN IMMUNOGLOBULIN G
     Route: 042

REACTIONS (5)
  - Asthenia [Unknown]
  - Malaise [Unknown]
  - Gait disturbance [Unknown]
  - Thrombosis [Recovered/Resolved]
  - Dyspnoea [Unknown]
